FAERS Safety Report 6021972-8 (Version None)
Quarter: 2008Q4

REPORT INFORMATION
  Report Type: 
  Country: None (occurrence: None)
  Receive Date: 20081229
  Receipt Date: 20081222
  Transmission Date: 20090506
  Serious: Yes (Other)
  Sender: FDA-Public Use
  Company Number: CA-ASTRAZENECA-2008UW28595

PATIENT
  Age: 68 Year
  Sex: Male

DRUGS (2)
  1. CRESTOR [Suspect]
     Route: 048
     Dates: start: 20070701
  2. COVERSYL [Concomitant]
     Route: 048
     Dates: start: 20080501

REACTIONS (3)
  - CHROMATURIA [None]
  - GAIT DISTURBANCE [None]
  - MYALGIA [None]
